FAERS Safety Report 7822820-3 (Version None)
Quarter: 2011Q4

REPORT INFORMATION
  Report Type: 
  Country: None (occurrence: None)
  Receive Date: 20111018
  Receipt Date: 20101210
  Transmission Date: 20120403
  Serious: No
  Sender: FDA-Public Use
  Company Number: US-ASTRAZENECA-2010SE37262

PATIENT
  Age: 89 Year
  Sex: Female
  Weight: 61.2 kg

DRUGS (5)
  1. LISINOPRIL [Concomitant]
     Indication: BLOOD PRESSURE
  2. CLARITIN [Concomitant]
  3. SYMBICORT [Suspect]
     Indication: ASTHMA
     Dosage: TOTAL DAILY DOSE 80/4.5, 2 PUFFS IN THE MORNING AND EVENING
     Route: 055
     Dates: start: 20101002
  4. FOSAMAX [Concomitant]
  5. CRESTOR [Suspect]
     Route: 048

REACTIONS (4)
  - COUGH [None]
  - RHINORRHOEA [None]
  - DRUG DOSE OMISSION [None]
  - INCREASED UPPER AIRWAY SECRETION [None]
